FAERS Safety Report 12241128 (Version 1)
Quarter: 2016Q2

REPORT INFORMATION
  Report Type: Spontaneous
  Country: US (occurrence: None)
  Receive Date: 20160405
  Receipt Date: 20160405
  Transmission Date: 20160815
  Serious: Yes (Other)
  Sender: FDA-Public Use
  Company Number: None

PATIENT
  Age: 60 Year
  Sex: Female
  Weight: 63.96 kg

DRUGS (1)
  1. CLONAZEPAM 0.5 MG [Suspect]
     Active Substance: CLONAZEPAM
     Indication: INSOMNIA
     Dosage: 0.5 MG 1QHS BY MOUTH
     Route: 048
     Dates: start: 20160315, end: 20160324

REACTIONS (3)
  - Product substitution issue [None]
  - Drug ineffective [None]
  - Insomnia [None]

NARRATIVE: CASE EVENT DATE: 20160315
